FAERS Safety Report 6629602-9 (Version None)
Quarter: 2010Q1

REPORT INFORMATION
  Report Type: 
  Country: None (occurrence: None)
  Receive Date: 20100311
  Receipt Date: 20100226
  Transmission Date: 20100710
  Serious: Yes (Hospitalization)
  Sender: FDA-Public Use
  Company Number: US-ELI_LILLY_AND_COMPANY-US200912001879

PATIENT
  Sex: Female
  Weight: 62.132 kg

DRUGS (4)
  1. FORTEO [Suspect]
     Indication: OSTEOPOROSIS
     Dosage: 20 UG, DAILY (1/D)
     Dates: start: 20080525
  2. TOPROL-XL [Concomitant]
     Dosage: 50 MG, UNK
  3. ZOCOR [Concomitant]
     Dosage: 10 MG, UNK
  4. ASPIRIN [Concomitant]
     Dosage: 81 MG, UNK

REACTIONS (3)
  - BACK PAIN [None]
  - BENIGN SOFT TISSUE NEOPLASM [None]
  - DRUG DOSE OMISSION [None]
